FAERS Safety Report 7650518-3 (Version None)
Quarter: 2011Q3

REPORT INFORMATION
  Report Type: 
  Country: None (occurrence: None)
  Receive Date: 20110802
  Receipt Date: 20110726
  Transmission Date: 20111222
  Serious: Yes (Death, Other)
  Sender: FDA-Public Use
  Company Number: JP-GLAXOSMITHKLINE-B0587109A

PATIENT
  Sex: Female
  Weight: 41 kg

DRUGS (7)
  1. LANSOPRAZOLE [Concomitant]
     Dosage: 15MG PER DAY
     Route: 048
  2. CLONAZEPAM [Concomitant]
     Dosage: 1MG PER DAY
     Route: 048
  3. LOXONIN [Concomitant]
     Dosage: 180MG PER DAY
     Route: 048
  4. MAGMITT [Concomitant]
     Route: 048
  5. TYKERB [Suspect]
     Indication: BREAST CANCER
     Dosage: 1250MG PER DAY
     Route: 048
     Dates: start: 20090501, end: 20090721
  6. XELODA [Concomitant]
     Indication: BREAST CANCER
     Dosage: 4800MG PER DAY
     Route: 048
     Dates: end: 20090721
  7. DECADRON [Concomitant]
     Dosage: 2MG PER DAY
     Route: 048

REACTIONS (2)
  - MALAISE [None]
  - HEPATIC FUNCTION ABNORMAL [None]
